FAERS Safety Report 9851207 (Version 4)
Quarter: 2014Q2

REPORT INFORMATION
  Report Type: Spontaneous
  Country: US (occurrence: US)
  Receive Date: 20140128
  Receipt Date: 20140610
  Transmission Date: 20141212
  Serious: Yes (Other)
  Sender: FDA-Public Use
  Company Number: US-RB-062873-14

PATIENT
  Age: 52 Year
  Sex: Female

DRUGS (2)
  1. SUBOXONE FILM [Suspect]
     Indication: DRUG DEPENDENCE
     Dosage: SUBOXONE FILM
     Route: 060
     Dates: start: 20130529, end: 2014
  2. LORTAB [Concomitant]
     Indication: PRODUCT USED FOR UNKNOWN INDICATION
     Dosage: UP TO 5 TABLETS DAILY; AS NEEDED
     Route: 065

REACTIONS (8)
  - Tongue neoplasm malignant stage unspecified [Not Recovered/Not Resolved]
  - Papilloma viral infection [Not Recovered/Not Resolved]
  - Stomatitis [Recovering/Resolving]
  - Oral pain [Recovering/Resolving]
  - Dry mouth [Not Recovered/Not Resolved]
  - Staphylococcal infection [Unknown]
  - Aptyalism [Not Recovered/Not Resolved]
  - Oral administration complication [Recovered/Resolved]
